FAERS Safety Report 10057532 (Version 2)
Quarter: 2014Q2

REPORT INFORMATION
  Report Type: Spontaneous
  Country: US (occurrence: US)
  Receive Date: 20140404
  Receipt Date: 20140415
  Transmission Date: 20141212
  Serious: Yes (Other)
  Sender: FDA-Public Use
  Company Number: US-AMGEN-USASP2014022331

PATIENT
  Age: 68 Year
  Sex: Female

DRUGS (3)
  1. PROLIA [Suspect]
     Indication: OSTEOPOROSIS POSTMENOPAUSAL
     Dosage: UNK
     Route: 065
     Dates: start: 2010
  2. CALCIUM [Concomitant]
  3. VITAMIN D                          /00107901/ [Concomitant]

REACTIONS (6)
  - Groin pain [Recovered/Resolved]
  - Nerve compression [Recovered/Resolved]
  - Arthralgia [Recovered/Resolved]
  - Muscle spasms [Unknown]
  - Feeling hot [Unknown]
  - Pain in extremity [Recovered/Resolved]
